FAERS Safety Report 7329673-0 (Version None)
Quarter: 2011Q1

REPORT INFORMATION
  Report Type: 
  Country: None (occurrence: None)
  Receive Date: 20110303
  Receipt Date: 20110224
  Transmission Date: 20110831
  Serious: No
  Sender: FDA-Public Use
  Company Number: US-TEVA-268994USA

PATIENT
  Sex: Female
  Weight: 67.646 kg

DRUGS (6)
  1. KLONOPIN [Concomitant]
     Indication: PANIC ATTACK
     Dates: start: 19990101
  2. CENTRUM [Concomitant]
     Indication: VITAMIN SUPPLEMENTATION
     Dates: start: 20100201
  3. PLAN B ONE-STEP [Suspect]
     Indication: POST COITAL CONTRACEPTION
     Route: 048
     Dates: start: 20110212, end: 20110212
  4. CALCIUM [Concomitant]
     Indication: MINERAL SUPPLEMENTATION
     Dates: start: 20100201
  5. OMEGA RED [Concomitant]
     Indication: VITAMIN SUPPLEMENTATION
     Dates: start: 20100801
  6. PAXIL [Concomitant]
     Indication: PANIC ATTACK
     Dates: start: 19990101

REACTIONS (4)
  - MENSTRUATION IRREGULAR [None]
  - BREAST TENDERNESS [None]
  - ABDOMINAL DISTENSION [None]
  - HEADACHE [None]
